FAERS Safety Report 18500757 (Version 1)
Quarter: 2020Q4

REPORT INFORMATION
  Report Type: Spontaneous
  Country: JP (occurrence: JP)
  Receive Date: 20201113
  Receipt Date: 20201113
  Transmission Date: 20210114
  Serious: Yes (Other)
  Sender: FDA-Public Use
  Company Number: JP-PFIZER INC-2020442315

PATIENT

DRUGS (1)
  1. CORTRIL [Suspect]
     Active Substance: HYDROCORTISONE
     Dosage: UNK, 3X/DAY(15MG IN THE MORNING, 10MG AT NOON, AND 5MG AT NIGHT)

REACTIONS (2)
  - Gastric haemorrhage [Unknown]
  - Product use issue [Unknown]
